FAERS Safety Report 23085796 (Version 1)
Quarter: 2023Q4

REPORT INFORMATION
  Report Type: Report from Study
  Country: US (occurrence: US)
  Receive Date: 20231019
  Receipt Date: 20231019
  Transmission Date: 20240109
  Serious: Yes (Other)
  Sender: FDA-Public Use
  Company Number: US-JAZZ PHARMACEUTICALS-2023-US-015578

PATIENT
  Sex: Female
  Weight: 52 kg

DRUGS (7)
  1. XYREM [Suspect]
     Active Substance: SODIUM OXYBATE
     Indication: Narcolepsy
  2. XYREM [Suspect]
     Active Substance: SODIUM OXYBATE
     Indication: Cataplexy
  3. XYREM [Suspect]
     Active Substance: SODIUM OXYBATE
     Indication: Somnolence
  4. NUVIGIL [Concomitant]
     Active Substance: ARMODAFINIL
     Indication: Product used for unknown indication
     Dosage: 1/2 TABLET IF SHE WAKES UP LATE AND 1 AND 1/2 TABLET IF SHE HAS HAD A LONG DAY
  5. NIFEDIPINE [Concomitant]
     Active Substance: NIFEDIPINE
     Indication: Raynaud^s phenomenon
  6. LEVOTHYROXINE [Concomitant]
     Active Substance: LEVOTHYROXINE
     Indication: Product used for unknown indication
     Dosage: UNK
     Dates: start: 2000
  7. CETIRIZINE HYDROCHLORIDE [Concomitant]
     Active Substance: CETIRIZINE HYDROCHLORIDE
     Indication: Hypersensitivity
     Dosage: UNK
     Dates: start: 2010

REACTIONS (9)
  - Autoimmune thyroiditis [Unknown]
  - Hypnagogic hallucination [Unknown]
  - Rhinitis allergic [Unknown]
  - Nightmare [Unknown]
  - Cough [Unknown]
  - Hypersensitivity [Unknown]
  - Pain [Unknown]
  - Sleep paralysis [Unknown]
  - Exposure during pregnancy [Unknown]
